FAERS Safety Report 6985960-7 (Version None)
Quarter: 2010Q3

REPORT INFORMATION
  Report Type: 
  Country: None (occurrence: None)
  Receive Date: 20100915
  Receipt Date: 20100908
  Transmission Date: 20110219
  Serious: Yes (Hospitalization, Other)
  Sender: FDA-Public Use
  Company Number: DE-ABBOTT-10P-062-0669077-00

PATIENT
  Age: 61 Year
  Sex: Male

DRUGS (3)
  1. HUMIRA [Suspect]
     Indication: PRODUCT USED FOR UNKNOWN INDICATION
  2. GLUCOCORTICOIDS [Concomitant]
     Indication: PRODUCT USED FOR UNKNOWN INDICATION
     Dates: start: 20100122
  3. VITAMIN D-ANALOGA [Concomitant]
     Indication: PSORIASIS
     Dates: start: 20100122

REACTIONS (3)
  - GASTROENTERITIS VIRAL [None]
  - LIMB INJURY [None]
  - LIMB TRAUMATIC AMPUTATION [None]
